FAERS Safety Report 6781056-8 (Version None)
Quarter: 2010Q2

REPORT INFORMATION
  Report Type: 
  Country: None (occurrence: None)
  Receive Date: 20100617
  Receipt Date: 20100617
  Transmission Date: 20101027
  Serious: Yes (Hospitalization)
  Sender: FDA-Public Use
  Company Number: None

PATIENT
  Sex: Male
  Weight: 95.7 kg

DRUGS (3)
  1. CARBOPLATIN [Suspect]
     Dosage: 945 MG
  2. ERBITUX [Suspect]
     Dosage: 565 MG
  3. TAXOL [Suspect]
     Dosage: 450 MG

REACTIONS (5)
  - ASTHENIA [None]
  - LUNG CONSOLIDATION [None]
  - NEUTROPENIA [None]
  - PNEUMONIA [None]
  - THROMBOCYTOPENIA [None]
